FAERS Safety Report 14770510 (Version 1)
Quarter: 2018Q2

REPORT INFORMATION
  Report Type: Spontaneous
  Country: US (occurrence: US)
  Receive Date: 20180417
  Receipt Date: 20180417
  Transmission Date: 20180711
  Serious: No
  Sender: FDA-Public Use
  Company Number: US-AMNEAL PHARMACEUTICALS-2018AMN00002

PATIENT
  Sex: Male

DRUGS (1)
  1. BUPRENORPHINE AND NALOXONE [Suspect]
     Active Substance: BUPRENORPHINE\NALOXONE
     Indication: PRODUCT USED FOR UNKNOWN INDICATION
     Dosage: 16 MG, DAILY TOTAL
     Route: 060
     Dates: start: 201501

REACTIONS (3)
  - Psychomotor hyperactivity [Unknown]
  - Insomnia [Unknown]
  - Drug effect decreased [Unknown]
